FAERS Safety Report 24105292 (Version 1)
Quarter: 2024Q3

REPORT INFORMATION
  Report Type: Spontaneous
  Country: IE (occurrence: IE)
  Receive Date: 20240717
  Receipt Date: 20240717
  Transmission Date: 20241017
  Serious: Yes (Death)
  Sender: MYLAN
  Company Number: IE-MYLANLABS-2024M1066596

PATIENT
  Sex: Male

DRUGS (1)
  1. CLOZARIL [Suspect]
     Active Substance: CLOZAPINE
     Indication: Schizophrenia
     Dosage: UNK
     Route: 048
     Dates: start: 20010701

REACTIONS (1)
  - Death [Fatal]

NARRATIVE: CASE EVENT DATE: 20240712
